FAERS Safety Report 6376137-7 (Version None)
Quarter: 2009Q3

REPORT INFORMATION
  Report Type: 
  Country: None (occurrence: None)
  Receive Date: 20090918
  Receipt Date: 20090910
  Transmission Date: 20100115
  Serious: Yes (Hospitalization)
  Sender: FDA-Public Use
  Company Number: SPV1-2009-00987

PATIENT
  Age: 69 Year
  Sex: Female

DRUGS (13)
  1. FOSRENOL [Suspect]
     Indication: HYPERPHOSPHATAEMIA
     Dosage: ORAL
     Route: 048
     Dates: start: 20090513, end: 20090515
  2. OLMETEC (OLMESARTAN MEDOXOMIL) [Concomitant]
  3. ATELEC (CILNIDIPINE) [Concomitant]
  4. ASPIRIN [Concomitant]
  5. LEVOTHYROXINE SODIUM [Concomitant]
  6. AMOBAN (ZOPICLONE) [Concomitant]
  7. WARFARIN SODIUM [Concomitant]
  8. LENDORM [Concomitant]
  9. TORSEMIDE [Concomitant]
  10. ASPARA K (ASPARTATE POTASSIUM) [Concomitant]
  11. CARVEDILOL [Concomitant]
  12. EVISTA [Concomitant]
  13. ALLOPURINOL [Concomitant]

REACTIONS (7)
  - ALANINE AMINOTRANSFERASE DECREASED [None]
  - BILE DUCT STONE [None]
  - CHOLECYSTITIS [None]
  - CHOLELITHIASIS [None]
  - HEPATIC ENZYME INCREASED [None]
  - HEPATIC FUNCTION ABNORMAL [None]
  - RENAL ATROPHY [None]
